FAERS Safety Report 7497395-1 (Version None)
Quarter: 2011Q2

REPORT INFORMATION
  Report Type: 
  Country: None (occurrence: None)
  Receive Date: 20110523
  Receipt Date: 20110513
  Transmission Date: 20111010
  Serious: Yes (Other)
  Sender: FDA-Public Use
  Company Number: US-MYLANLABS-2011S1010045

PATIENT
  Age: 63 Year
  Sex: Female
  Weight: 72.58 kg

DRUGS (3)
  1. LEVOTHYROXINE SODIUM [Suspect]
     Indication: HYPOTHYROIDISM
     Route: 048
     Dates: start: 20110101, end: 20110101
  2. DIOVAN [Concomitant]
     Indication: BLOOD PRESSURE
  3. LEVOTHYROXINE SODIUM [Suspect]
     Route: 048
     Dates: start: 20110101, end: 20110101

REACTIONS (4)
  - REACTION TO DRUG EXCIPIENTS [None]
  - ANGIOEDEMA [None]
  - AGEUSIA [None]
  - MOUTH HAEMORRHAGE [None]
